FAERS Safety Report 8381579-4 (Version None)
Quarter: 2012Q2

REPORT INFORMATION
  Report Type: 
  Country: None (occurrence: None)
  Receive Date: 20120523
  Receipt Date: 20120514
  Transmission Date: 20120825
  Serious: Yes (Death, Life-Threatening, Disabling, Other)
  Sender: FDA-Public Use
  Company Number: US-MYLANLABS-2009AL002610

PATIENT
  Sex: Female
  Weight: 72.58 kg

DRUGS (27)
  1. DIGOXIN [Suspect]
     Indication: ARRHYTHMIA
     Route: 048
     Dates: start: 20020401, end: 20080616
  2. POTASSIUM CHLORIDE [Concomitant]
  3. NADOLOL [Concomitant]
  4. PROPOXYPHENE NAPSYLATE W/ ACETAMINOPHEN [Concomitant]
  5. WARFARIN SODIUM [Concomitant]
  6. INDOMETHACIN [Concomitant]
  7. HYALGAN [Concomitant]
  8. TOPROL-XL [Concomitant]
  9. LORAZEPAM [Concomitant]
  10. ALPRAZOLAM [Concomitant]
  11. VICON FORTE [Concomitant]
  12. HYDROCODONE BITARTRATE AND IBUPROFEN [Concomitant]
     Dosage: 7.5/200MG
  13. METFORMIN HCL [Concomitant]
  14. TUSS DS [Concomitant]
  15. SPIRONOLACTONE AND HYDROCHLOROTHIAZIDE [Concomitant]
  16. FUROSEMIDE [Concomitant]
  17. POLY-TUSSIN DM [Concomitant]
  18. METOLAZONE [Concomitant]
  19. BLEPHAMIDE /00319401/ [Concomitant]
  20. ALTACE [Concomitant]
  21. ZADITOR /00495201/ [Concomitant]
  22. CELEBREX [Concomitant]
  23. HYALURONATE [Concomitant]
  24. DIAZEPAM [Concomitant]
  25. HYDROCODONE [Concomitant]
  26. LORTAB [Concomitant]
  27. TORADOL [Concomitant]

REACTIONS (25)
  - INJURY [None]
  - CARDIAC ARREST [None]
  - JOINT INJECTION [None]
  - DIABETES MELLITUS [None]
  - OEDEMA [None]
  - ILL-DEFINED DISORDER [None]
  - ATRIAL FIBRILLATION [None]
  - GAIT DISTURBANCE [None]
  - DEHYDRATION [None]
  - MYOPATHY [None]
  - CARDIAC PACEMAKER INSERTION [None]
  - JOINT DISLOCATION [None]
  - ECONOMIC PROBLEM [None]
  - DEATH [None]
  - JOINT CREPITATION [None]
  - VISUAL IMPAIRMENT [None]
  - OEDEMA PERIPHERAL [None]
  - ARTHRALGIA [None]
  - HYPERTENSION [None]
  - WHEELCHAIR USER [None]
  - CATARACT [None]
  - CARDIAC FAILURE CONGESTIVE [None]
  - OSTEOARTHRITIS [None]
  - TACHYCARDIA [None]
  - PAIN IN EXTREMITY [None]
